FAERS Safety Report 17651059 (Version 1)
Quarter: 2020Q2

REPORT INFORMATION
  Report Type: Spontaneous
  Country: US (occurrence: US)
  Receive Date: 20200409
  Receipt Date: 20200409
  Transmission Date: 20200713
  Serious: Yes (Life-Threatening, Hospitalization, Other)
  Sender: FDA-Public Use
  Company Number: US-MYLANLABS-2020M1035284

PATIENT
  Age: 57 Year
  Sex: Male

DRUGS (1)
  1. CLADRIBINE. [Suspect]
     Active Substance: CLADRIBINE
     Indication: MYELOFIBROSIS
     Route: 065

REACTIONS (5)
  - Torsade de pointes [Recovering/Resolving]
  - Stress cardiomyopathy [Recovering/Resolving]
  - Thrombocytopenia [Unknown]
  - Sinus tachycardia [Recovering/Resolving]
  - Ventricular fibrillation [Recovering/Resolving]
